FAERS Safety Report 6012229-X (Version None)
Quarter: 2008Q4

REPORT INFORMATION
  Report Type: 
  Country: None (occurrence: None)
  Receive Date: 20081218
  Receipt Date: 20081209
  Transmission Date: 20090506
  Serious: Yes (Hospitalization)
  Sender: FDA-Public Use
  Company Number: US-ABBOTT-08P-163-0492190-00

PATIENT
  Sex: Male

DRUGS (1)
  1. ZEMPLAR [Suspect]
     Indication: HYPERPARATHYROIDISM
     Dates: start: 20080701, end: 20081202

REACTIONS (5)
  - CARDIAC FAILURE CONGESTIVE [None]
  - FUNGAL PERITONITIS [None]
  - HALLUCINATION [None]
  - PNEUMONIA [None]
  - PYREXIA [None]
